FAERS Safety Report 6125956-0 (Version None)
Quarter: 2009Q1

REPORT INFORMATION
  Report Type: 
  Country: None (occurrence: None)
  Receive Date: 20090318
  Receipt Date: 20090309
  Transmission Date: 20090719
  Serious: Yes (Life-Threatening)
  Sender: FDA-Public Use
  Company Number: 2009TJ0034FU1

PATIENT
  Age: 18 Year
  Sex: Female

DRUGS (2)
  1. EPINEPHRINE [Suspect]
     Indication: ANAPHYLACTIC REACTION
     Dosage: 10.3 MG, AS NEEDED, SUBCUTANEOUS/INTRAMUSCULAR
     Route: 058
     Dates: start: 20090101
  2. BENADRYL [Concomitant]

REACTIONS (3)
  - DEVICE MALFUNCTION [None]
  - INTENTIONAL DRUG MISUSE [None]
  - PRODUCT QUALITY ISSUE [None]
